FAERS Safety Report 5977406-2 (Version None)
Quarter: 2008Q4

REPORT INFORMATION
  Report Type: 
  Country: None (occurrence: None)
  Receive Date: 20081203
  Receipt Date: 20081201
  Transmission Date: 20090506
  Serious: Yes (Other)
  Sender: FDA-Public Use
  Company Number: US-BAYER-200811650BCC

PATIENT
  Age: 24 Year
  Sex: Female
  Weight: 77 kg

DRUGS (9)
  1. ASPIRIN [Suspect]
     Indication: JUVENILE ARTHRITIS
     Dosage: TOTAL DAILY DOSE: 2600 MG  UNIT DOSE: 325 MG
     Route: 048
     Dates: start: 19680101
  2. ASPIRIN [Suspect]
     Dosage: TOTAL DAILY DOSE: 3900 MG  UNIT DOSE: 325 MG
     Route: 048
     Dates: start: 19810101, end: 19810101
  3. OXYCONTIN [Concomitant]
  4. ZOLOFT [Concomitant]
  5. LASIX [Concomitant]
  6. PERCOCET [Concomitant]
  7. PROTONIX [Concomitant]
  8. OXYGEN [Concomitant]
  9. KLONOPIN [Concomitant]

REACTIONS (8)
  - BRONCHIECTASIS [None]
  - DYSPNOEA [None]
  - HEADACHE [None]
  - LUNG DISORDER [None]
  - PNEUMONIA BACTERIAL [None]
  - PNEUMONIA VIRAL [None]
  - SINUS DISORDER [None]
  - TINNITUS [None]
